FAERS Safety Report 15057260 (Version 6)
Quarter: 2019Q4

REPORT INFORMATION
  Report Type: Report from Study
  Country: None (occurrence: US)
  Receive Date: 20180624
  Receipt Date: 20191104
  Transmission Date: 20200122
  Serious: Yes (Hospitalization, Other)
  Sender: FDA-Public Use
  Company Number: US-ABBVIE-18K-163-2387867-00

PATIENT
  Sex: Female

DRUGS (3)
  1. STELARA [Suspect]
     Active Substance: USTEKINUMAB
     Indication: PRODUCT USED FOR UNKNOWN INDICATION
     Route: 065
  2. HUMIRA [Suspect]
     Active Substance: ADALIMUMAB
     Route: 058
     Dates: start: 201805
  3. HUMIRA [Suspect]
     Active Substance: ADALIMUMAB
     Indication: CROHN^S DISEASE
     Route: 058
     Dates: start: 201612, end: 201805

REACTIONS (18)
  - Adverse drug reaction [Unknown]
  - Diplopia [Unknown]
  - Gastrointestinal disorder [Unknown]
  - Nausea [Unknown]
  - Abdominal pain [Unknown]
  - Nephrolithiasis [Unknown]
  - Dizziness [Unknown]
  - Nervousness [Unknown]
  - Visual impairment [Not Recovered/Not Resolved]
  - Crohn^s disease [Recovered/Resolved]
  - Frequent bowel movements [Unknown]
  - Therapeutic product effect decreased [Unknown]
  - Crohn^s disease [Recovered/Resolved]
  - Cardiomegaly [Unknown]
  - Hyperaesthesia [Unknown]
  - Balance disorder [Unknown]
  - Drug level decreased [Not Recovered/Not Resolved]
  - Vision blurred [Unknown]

NARRATIVE: CASE EVENT DATE: 2018
